FAERS Safety Report 8559516-9 (Version None)
Quarter: 2012Q3

REPORT INFORMATION
  Report Type: 
  Country: None (occurrence: None)
  Receive Date: 20120802
  Receipt Date: 20120724
  Transmission Date: 20120928
  Serious: Yes (Hospitalization)
  Sender: FDA-Public Use
  Company Number: US-BAYER-2012-042383

PATIENT
  Age: 22 Year
  Sex: Female
  Weight: 59 kg

DRUGS (16)
  1. DROSPIRENONE AND ETHINYL ESTRADIOL [Suspect]
  2. AZITHROMYCIN [Concomitant]
  3. CLONAZEPAM [Concomitant]
  4. ZEBETA [Concomitant]
  5. ATIVAN [Concomitant]
  6. CIPROFLOXACIN HCL [Concomitant]
  7. ZOFRAN [Concomitant]
  8. KLONOPIN [Concomitant]
  9. PERCOCET [Concomitant]
  10. YAZ [Suspect]
  11. R-TANNA [CHLORPHENAMINE TANNATE,PHENYLEPHRINE TANNATE] [Concomitant]
  12. BISOPROLOL FUMARATE [Concomitant]
  13. DILAUDID [Concomitant]
  14. LEXAPRO [Concomitant]
  15. POLARAMINE [Concomitant]
  16. PREDNISONE [Concomitant]

REACTIONS (7)
  - HEPATIC HAEMORRHAGE [None]
  - GALLBLADDER DISORDER [None]
  - HEPATIC RUPTURE [None]
  - PAIN [None]
  - HEPATIC MASS [None]
  - INJURY [None]
  - KELOID SCAR [None]
